FAERS Safety Report 11340268 (Version 4)
Quarter: 2015Q3

REPORT INFORMATION
  Report Type: Spontaneous
  Country: JP (occurrence: JP)
  Receive Date: 20150805
  Receipt Date: 20150915
  Transmission Date: 20151125
  Serious: Yes (Death)
  Sender: FDA-Public Use
  Company Number: JP-SA-2015SA113683

PATIENT
  Age: 68 Year
  Sex: Male
  Weight: 54.4 kg

DRUGS (8)
  1. EMEND [Concomitant]
     Active Substance: APREPITANT
     Indication: PREMEDICATION
     Route: 048
     Dates: start: 20150721, end: 20150721
  2. CISPLATIN. [Suspect]
     Active Substance: CISPLATIN
     Indication: OESOPHAGEAL SQUAMOUS CELL CARCINOMA STAGE III
     Dosage: FREQUENCY: 28 DAY CYCLE
     Route: 042
     Dates: start: 20150721, end: 20150721
  3. G-LASTA [Concomitant]
     Active Substance: PEGFILGRASTIM
  4. EMEND [Concomitant]
     Active Substance: APREPITANT
     Indication: PREMEDICATION
     Dosage: 4 DAYS PER 28-DAY CYCLE
     Route: 048
     Dates: start: 20150722, end: 20150725
  5. ONETAXOTERE [Suspect]
     Active Substance: DOCETAXEL
     Indication: OESOPHAGEAL SQUAMOUS CELL CARCINOMA STAGE III
     Route: 042
     Dates: start: 20150721, end: 20150721
  6. ZOPICLONE [Concomitant]
     Active Substance: ZOPICLONE
     Indication: INSOMNIA
     Route: 048
     Dates: start: 20150721, end: 20150726
  7. KYTRIL [Concomitant]
     Active Substance: GRANISETRON HYDROCHLORIDE
  8. 5-FU [Suspect]
     Active Substance: FLUOROURACIL
     Indication: OESOPHAGEAL SQUAMOUS CELL CARCINOMA STAGE III
     Dosage: 5 DAYS PER 28-DAY ?CYCLE
     Route: 042
     Dates: start: 20150721, end: 20150725

REACTIONS (3)
  - White blood cell count decreased [Fatal]
  - Sepsis [Fatal]
  - Acute kidney injury [Fatal]

NARRATIVE: CASE EVENT DATE: 20150728
